FAERS Safety Report 13511720 (Version 1)
Quarter: 2017Q2

REPORT INFORMATION
  Report Type: Spontaneous
  Country: US (occurrence: US)
  Receive Date: 20170503
  Receipt Date: 20170503
  Transmission Date: 20170830
  Serious: No
  Sender: FDA-Public Use
  Company Number: None

PATIENT
  Age: 57 Year
  Sex: Female
  Weight: 78 kg

DRUGS (1)
  1. VELPHORO [Suspect]
     Active Substance: FERRIC OXYHYDROXIDE
     Indication: HYPERPHOSPHATAEMIA
     Dosage: ORAL WITH MEALS?
     Route: 048
     Dates: start: 20161003, end: 20170430

REACTIONS (2)
  - Vomiting [None]
  - Aversion [None]

NARRATIVE: CASE EVENT DATE: 20170430
